FAERS Safety Report 5295730-6 (Version None)
Quarter: 2007Q2

REPORT INFORMATION
  Report Type: 
  Country: None (occurrence: None)
  Receive Date: 20070410
  Receipt Date: 20070410
  Transmission Date: 20071010
  Serious: Yes (Death)
  Sender: FDA-Public Use
  Company Number: None

PATIENT
  Age: 38 Year
  Sex: Male

DRUGS (2)
  1. TAXOTERE [Suspect]
     Indication: PHARYNGEAL CANCER METASTATIC
     Dosage: 64MG, IV
     Route: 042
     Dates: start: 20050919
  2. VELCADE [Suspect]
     Indication: PHARYNGEAL CANCER METASTATIC
     Dosage: 2.56MG, IV
     Route: 042
     Dates: start: 20050919

REACTIONS (2)
  - DISEASE PROGRESSION [None]
  - PERFORMANCE STATUS DECREASED [None]
